FAERS Safety Report 15213276 (Version 1)
Quarter: 2018Q3

REPORT INFORMATION
  Report Type: Spontaneous
  Country: US (occurrence: US)
  Receive Date: 20180730
  Receipt Date: 20180730
  Transmission Date: 20181010
  Serious: Yes (Other)
  Sender: FDA-Public Use
  Company Number: US-ROCHE-2160357

PATIENT
  Weight: 106.69 kg

DRUGS (2)
  1. OCREVUS [Suspect]
     Active Substance: OCRELIZUMAB
     Indication: PRIMARY PROGRESSIVE MULTIPLE SCLEROSIS
     Route: 065
  2. BENADRYL [Concomitant]
     Active Substance: DIPHENHYDRAMINE HYDROCHLORIDE
     Indication: PREMEDICATION

REACTIONS (6)
  - Anxiety [Unknown]
  - Throat irritation [Recovered/Resolved]
  - Urticaria [Recovered/Resolved]
  - Hypersensitivity [Unknown]
  - Seizure [Unknown]
  - Euphoric mood [Unknown]
